FAERS Safety Report 7934116-X (Version None)
Quarter: 2011Q4

REPORT INFORMATION
  Report Type: 
  Country: None (occurrence: None)
  Receive Date: 20111122
  Receipt Date: 20111110
  Transmission Date: 20120403
  Serious: Yes (Other)
  Sender: FDA-Public Use
  Company Number: CA-SANOFI-AVENTIS-2011SA074121

PATIENT
  Age: 81 Year
  Sex: Male

DRUGS (4)
  1. TAMSULOSIN HCL [Concomitant]
     Route: 065
  2. AVODART [Concomitant]
     Route: 065
  3. PLAVIX [Suspect]
     Route: 048
     Dates: start: 20111010
  4. RAMIPRIL [Concomitant]
     Route: 065

REACTIONS (5)
  - APHASIA [None]
  - HAEMORRHOIDAL HAEMORRHAGE [None]
  - INITIAL INSOMNIA [None]
  - MUSCULAR WEAKNESS [None]
  - FATIGUE [None]
